FAERS Safety Report 21190061 (Version 1)
Quarter: 2022Q3

REPORT INFORMATION
  Report Type: Spontaneous
  Country: FR (occurrence: FR)
  Receive Date: 20220809
  Receipt Date: 20220809
  Transmission Date: 20221026
  Serious: Yes (Life-Threatening, Other)
  Sender: FDA-Public Use
  Company Number: FR-GLAXOSMITHKLINE-FRCH2022GSK027796

PATIENT

DRUGS (15)
  1. SCOPOLAMINE [Suspect]
     Active Substance: SCOPOLAMINE
     Indication: Salivary hypersecretion
     Dosage: 1 DF, EVERY 72 HRS
     Route: 003
     Dates: start: 20220304, end: 20220311
  2. SCOPOLAMINE [Suspect]
     Active Substance: SCOPOLAMINE
     Indication: Salivary hypersecretion
     Dosage: 2 DF, EVERY 72 HRS
     Route: 003
     Dates: start: 20220313
  3. SCOPOLAMINE [Suspect]
     Active Substance: SCOPOLAMINE
     Indication: Salivary hypersecretion
     Dosage: 1 DF, EVERY 72 HRS
     Route: 003
     Dates: start: 20220316
  4. ZOPICLONE [Suspect]
     Active Substance: ZOPICLONE
     Indication: Insomnia
     Dosage: 7.5 MG, QD
     Route: 048
     Dates: start: 20211224, end: 20220314
  5. LOXAPINE [Suspect]
     Active Substance: LOXAPINE
     Indication: Schizophrenia
     Dosage: 75 MG, QD
     Route: 048
     Dates: start: 20211230, end: 20220224
  6. LOXAPINE [Suspect]
     Active Substance: LOXAPINE
     Dosage: 125 MG, QD
     Route: 048
     Dates: start: 20210224, end: 20220307
  7. LOXAPINE [Suspect]
     Active Substance: LOXAPINE
     Dosage: 75 MG, QD
     Route: 048
     Dates: start: 20220307, end: 20220310
  8. LOXAPINE [Suspect]
     Active Substance: LOXAPINE
     Dosage: 25 MG, QD
     Route: 048
     Dates: start: 20220310, end: 20220314
  9. VALPROATE SODIUM [Suspect]
     Active Substance: VALPROATE SODIUM
     Indication: Schizophrenia
     Dosage: 4 DF, QD
     Route: 048
     Dates: start: 20211224, end: 20220314
  10. CLOZAPINE [Suspect]
     Active Substance: CLOZAPINE
     Indication: Schizophrenia
     Dosage: 200 MG, QD
     Route: 048
     Dates: start: 20211230, end: 20220314
  11. MIANSERIN HYDROCHLORIDE [Suspect]
     Active Substance: MIANSERIN HYDROCHLORIDE
     Indication: Depression
     Dosage: 24 MG, QD
     Route: 048
     Dates: start: 20211224, end: 20220314
  12. TROPATEPINE HYDROCHLORIDE [Suspect]
     Active Substance: TROPATEPINE HYDROCHLORIDE
     Indication: Extrapyramidal disorder
     Dosage: 20 MG, QD
     Route: 048
     Dates: start: 20211224, end: 20220314
  13. VALIUM [Suspect]
     Active Substance: DIAZEPAM
     Indication: Schizophrenia
     Dosage: 30 MG, QD
     Route: 048
     Dates: start: 20220223
  14. X PREP [Concomitant]
     Indication: Constipation
     Dosage: 2 DF, EVERY 72 HRS
     Dates: start: 20220306, end: 20220321
  15. POLYETHYLENE GLYCOLS [Concomitant]
     Active Substance: POLYETHYLENE GLYCOLS
     Indication: Product used for unknown indication
     Dosage: 4 DF
     Dates: start: 20211224

REACTIONS (3)
  - Intestinal obstruction [Recovered/Resolved]
  - Drug interaction [Recovered/Resolved]
  - Incorrect dose administered [Unknown]

NARRATIVE: CASE EVENT DATE: 20220314
